FAERS Safety Report 7787132-5 (Version None)
Quarter: 2011Q3

REPORT INFORMATION
  Report Type: 
  Country: None (occurrence: None)
  Receive Date: 20110929
  Receipt Date: 20110926
  Transmission Date: 20111222
  Serious: Yes (Hospitalization)
  Sender: FDA-Public Use
  Company Number: US-VERTEX PHARMACEUTICALS INC.-AE-2011-001176

PATIENT
  Age: 51 Year
  Sex: Female

DRUGS (12)
  1. INCIVEK [Suspect]
     Indication: HEPATITIS C
     Dates: start: 20110708, end: 20110921
  2. PRILOSEC [Concomitant]
  3. CARVEDILOL [Concomitant]
  4. PEGASYS [Concomitant]
     Indication: HEPATITIS C
     Dates: start: 20110708, end: 20110921
  5. NITROSTAT [Concomitant]
     Route: 060
  6. LOSARTAN POTASSIUM AND HYDROCHLOROTHIAZIDE [Concomitant]
     Dates: end: 20110901
  7. ASPIR-81 [Concomitant]
  8. CLONIDINE HCL [Concomitant]
  9. PROAIR HFA [Concomitant]
  10. RIBAVIRIN [Concomitant]
     Indication: HEPATITIS C
     Dates: start: 20110708, end: 20110921
  11. AMLODIPINE BESYLATE [Concomitant]
  12. NAPROXEN [Concomitant]

REACTIONS (3)
  - THROMBOCYTOPENIA [None]
  - ANAEMIA [None]
  - RENAL FAILURE [None]
